FAERS Safety Report 4639713-5 (Version None)
Quarter: 2005Q2

REPORT INFORMATION
  Report Type: 
  Country: None (occurrence: None)
  Receive Date: 20050328
  Receipt Date: 20041221
  Transmission Date: 20051028
  Serious: No
  Sender: FDA-Public Use
  Company Number: USA041286792

PATIENT
  Age: 39 Year
  Sex: Female
  Weight: 66 kg

DRUGS (4)
  1. CYMBALTA [Suspect]
     Indication: DEPRESSION
     Dosage: 60 MG DAY
     Dates: start: 20041209
  2. STRATTERA [Suspect]
     Indication: DISTURBANCE IN ATTENTION
     Dosage: 80 MG DAY
     Dates: start: 20040601
  3. SYNTHROID [Concomitant]
  4. LEXAPRO [Concomitant]

REACTIONS (5)
  - CRYING [None]
  - DEPRESSION [None]
  - MOOD SWINGS [None]
  - WEIGHT DECREASED [None]
  - WEIGHT INCREASED [None]
